FAERS Safety Report 4360931-8 (Version None)
Quarter: 2004Q2

REPORT INFORMATION
  Report Type: 
  Country: None (occurrence: None)
  Receive Date: 20040520
  Receipt Date: 20040511
  Transmission Date: 20050107
  Serious: No
  Sender: FDA-Public Use
  Company Number: US-JNJFOC-20040304950

PATIENT
  Age: 62 Year
  Sex: Male
  Weight: 87.09 kg

DRUGS (33)
  1. REMICADE [Suspect]
     Route: 042
     Dates: start: 20031224
  2. REMICADE [Suspect]
     Route: 042
     Dates: start: 20031224
  3. REMICADE [Suspect]
     Dosage: 1 TIME EVERY 2 MONTHS
     Route: 042
     Dates: start: 20031224
  4. NITRO PATCH [Concomitant]
     Indication: ANGINA PECTORIS
     Dosage: 0.2 MG/HR
  5. PENTASA [Concomitant]
  6. ALLOPURINOL TAB [Concomitant]
     Indication: GOUT
  7. METROPOLOL [Concomitant]
     Indication: HYPERTENSION
  8. RANITIDINE [Concomitant]
     Indication: HYPERCHLORHYDRIA
  9. TRICOR [Concomitant]
  10. VIT B-12 [Concomitant]
     Dosage: 3 CC PER MONTH
  11. TRAZODONE HCL [Concomitant]
     Dosage: 1/3 1 TIME PER DAY
  12. POTASSIUM [Concomitant]
  13. MAGNESIUM [Concomitant]
  14. VITAMIN E [Concomitant]
  15. MULTI-VITAMIN [Concomitant]
  16. MULTI-VITAMIN [Concomitant]
  17. MULTI-VITAMIN [Concomitant]
  18. MULTI-VITAMIN [Concomitant]
  19. MULTI-VITAMIN [Concomitant]
  20. MULTI-VITAMIN [Concomitant]
  21. MULTI-VITAMIN [Concomitant]
  22. MULTI-VITAMIN [Concomitant]
  23. PROBIOTIC [Concomitant]
     Indication: GASTROINTESTINAL DISORDER THERAPY
  24. SIMETHICONE [Concomitant]
     Dosage: 1 DOSE. 2 TIMES PER DAY MAXIMUM.
  25. DICYCLOMINE [Concomitant]
     Dosage: 1 DOSE,  4 TIMES A DAY MAXIMUM
  26. PHENERGAN [Concomitant]
     Indication: NAUSEA
     Dosage: 1 DOSE, 3 TIMES PER DAY MAXIMUM
  27. TYLENOL [Concomitant]
     Indication: PAIN
     Dosage: 2 DOSES, 6 TIMES A DAY MAXIMUM
  28. OXYCODONE [Concomitant]
     Dosage: 1-2 DOSES, 4 TIMES A DAY MAXIMUM.
  29. BENADRYL [Concomitant]
     Dosage: 2 DOSE, MAXIMUM 4 PER DAY
  30. GLUCOSAMINE AND CONDROITIN [Concomitant]
  31. GLUCOSAMINE AND CONDROITIN [Concomitant]
  32. GLUCOSAMINE AND CONDROITIN [Concomitant]
  33. GLUCOSAMINE AND CONDROITIN [Concomitant]
     Indication: MINERAL SUPPLEMENTATION

REACTIONS (1)
  - NO ADVERSE DRUG EFFECT [None]
